FAERS Safety Report 7357051-7 (Version None)
Quarter: 2011Q1

REPORT INFORMATION
  Report Type: 
  Country: None (occurrence: None)
  Receive Date: 20110311
  Receipt Date: 20110311
  Transmission Date: 20110831
  Serious: No
  Sender: FDA-Public Use
  Company Number: None

PATIENT
  Sex: Male
  Weight: 103 kg

DRUGS (2)
  1. TARCEVA [Suspect]
     Dosage: 2900 MG
  2. GEMCITABINE HYDROCHLORIDE [Suspect]
     Dosage: 6390 MG

REACTIONS (1)
  - HYPOPHOSPHATAEMIA [None]
